FAERS Safety Report 10569578 (Version 3)
Quarter: 2014Q4

REPORT INFORMATION
  Report Type: Spontaneous
  Country: BR (occurrence: BR)
  Receive Date: 20141106
  Receipt Date: 20141205
  Transmission Date: 20150529
  Serious: No
  Sender: FDA-Public Use
  Company Number: PHHY2014BR137731

PATIENT
  Age: 36 Year
  Sex: Male
  Weight: 59 kg

DRUGS (3)
  1. RITALIN LA [Suspect]
     Active Substance: METHYLPHENIDATE HYDROCHLORIDE
     Indication: ATTENTION DEFICIT/HYPERACTIVITY DISORDER
     Dosage: 1 DF (CAPSULE), BID (1 IN THE MORNING AND 1 IN THE AFTERNOON)
     Route: 065
  2. RIVOTRIL [Concomitant]
     Active Substance: CLONAZEPAM
     Indication: ANXIETY
     Dosage: 2 DF (ONE OR TWO TABLETS), PRN
     Route: 048
     Dates: start: 2009
  3. RITALIN [Suspect]
     Active Substance: METHYLPHENIDATE HYDROCHLORIDE
     Indication: ATTENTION DEFICIT/HYPERACTIVITY DISORDER
     Dosage: 1 DF (TABLET), BID (ONE IN THE MORNING AND ONE IN THE AFTERNOON)
     Route: 048
     Dates: start: 20141023

REACTIONS (1)
  - Drug ineffective [Unknown]
